FAERS Safety Report 5353581-8 (Version None)
Quarter: 2007Q2

REPORT INFORMATION
  Report Type: 
  Country: None (occurrence: None)
  Receive Date: 20070608
  Receipt Date: 20070529
  Transmission Date: 20071010
  Serious: Yes (Other)
  Sender: FDA-Public Use
  Company Number: GXKR2007TR04701

PATIENT
  Age: 6 Year
  Sex: 0

DRUGS (2)
  1. PARACETAMOL (NGX) (PARACETAMOL)UNKNOWN [Suspect]
     Indication: BONE PAIN
     Dosage: 250 MG, ONCE/SINGLE
  2. FILGRASTIM (NGX) (FILGRASTIM) [Suspect]
     Indication: HAEMATOPOIETIC STEM CELL MOBILISATION
     Dosage: 10 UG/KG, QD, SUBCUTANEOUS
     Route: 058

REACTIONS (8)
  - ASPARTATE AMINOTRANSFERASE INCREASED [None]
  - BLOOD POTASSIUM DECREASED [None]
  - BLOOD URIC ACID INCREASED [None]
  - DRUG INEFFECTIVE [None]
  - HAEMATOCRIT DECREASED [None]
  - RHABDOMYOLYSIS [None]
  - VOMITING [None]
  - WHITE BLOOD CELL COUNT INCREASED [None]
